FAERS Safety Report 5322538-5 (Version None)
Quarter: 2007Q2

REPORT INFORMATION
  Report Type: 
  Country: None (occurrence: None)
  Receive Date: 20070223
  Receipt Date: 20070122
  Transmission Date: 20071010
  Serious: Yes (Other)
  Sender: FDA-Public Use
  Company Number: 256078

PATIENT
  Age: 75 Year
  Sex: Female
  Weight: 63.5 kg

DRUGS (6)
  1. PRANDIN [Suspect]
     Indication: DIABETES MELLITUS NON-INSULIN-DEPENDENT
     Dosage: SEE IMAGE
     Route: 048
     Dates: start: 20060811, end: 20060801
  2. PRANDIN [Suspect]
     Indication: DIABETES MELLITUS NON-INSULIN-DEPENDENT
     Dosage: SEE IMAGE
     Route: 048
     Dates: start: 20060101
  3. TARKA [Concomitant]
  4. COZAAR [Concomitant]
  5. ZOCOR [Concomitant]
  6. NOVOLOG MIX 70/30 (INSULIN ASPART) SUSPENSION FOR INJECTION [Concomitant]

REACTIONS (1)
  - BLOOD GLUCOSE INCREASED [None]
